FAERS Safety Report 7130701-6 (Version None)
Quarter: 2010Q4

REPORT INFORMATION
  Report Type: 
  Country: None (occurrence: None)
  Receive Date: 20101201
  Receipt Date: 20081001
  Transmission Date: 20110411
  Serious: No
  Sender: FDA-Public Use
  Company Number: FR-CELGENEUS-056-21880-08100238

PATIENT
  Age: 51 Year
  Sex: Female

DRUGS (6)
  1. REVLIMID [Suspect]
     Indication: MULTIPLE MYELOMA
     Route: 048
     Dates: start: 20071119, end: 20080106
  2. BACTRIM [Concomitant]
     Route: 065
  3. ORACILLIN [Concomitant]
     Route: 065
  4. VALACYCLOVIR HYDROCHLORIDE [Concomitant]
     Route: 065
  5. SINTROM [Concomitant]
     Route: 065
  6. STILNOX [Concomitant]
     Route: 065

REACTIONS (1)
  - HYPERTHYROIDISM [None]
